FAERS Safety Report 14123846 (Version 1)
Quarter: 2017Q4

REPORT INFORMATION
  Report Type: Spontaneous
  Country: US (occurrence: US)
  Receive Date: 20171025
  Receipt Date: 20171025
  Transmission Date: 20180321
  Serious: No
  Sender: FDA-Public Use
  Company Number: US-KERYX BIOPHARMACEUTICALS, INC.-2017US002862

PATIENT
  Age: 13 Year
  Sex: Male
  Weight: 61.5 kg

DRUGS (8)
  1. SEVELAMER [Concomitant]
     Active Substance: SEVELAMER
     Dosage: 5 TAB, TID
  2. SEVELAMER [Concomitant]
     Active Substance: SEVELAMER
     Indication: PRODUCT USED FOR UNKNOWN INDICATION
     Dosage: 5 TAB, TID
  3. SEVELAMER [Concomitant]
     Active Substance: SEVELAMER
     Dosage: 5 TAB, TID
  4. AURYXIA [Suspect]
     Active Substance: TETRAFERRIC TRICITRATE DECAHYDRATE
     Indication: HYPERPHOSPHATAEMIA
     Dosage: 1 G (1 TABLET), TID
     Dates: start: 20150410, end: 20150520
  5. SEVELAMER [Concomitant]
     Active Substance: SEVELAMER
     Dosage: 5 TAB, TID
  6. SEVELAMER [Concomitant]
     Active Substance: SEVELAMER
     Dosage: 5 TAB, TID
  7. AURYXIA [Suspect]
     Active Substance: TETRAFERRIC TRICITRATE DECAHYDRATE
     Dosage: 3 G (3 TABLETS), TID
     Dates: start: 20150708
  8. AURYXIA [Suspect]
     Active Substance: TETRAFERRIC TRICITRATE DECAHYDRATE
     Dosage: 2 G (2 TABLETS), TID
     Dates: start: 20150520, end: 20150708

REACTIONS (1)
  - Drug administered to patient of inappropriate age [Unknown]

NARRATIVE: CASE EVENT DATE: 20150410
